FAERS Safety Report 14152429 (Version 2)
Quarter: 2017Q4

REPORT INFORMATION
  Report Type: Report from Study
  Country: JP (occurrence: JP)
  Receive Date: 20171102
  Receipt Date: 20171222
  Transmission Date: 20180321
  Serious: Yes (Death)
  Sender: FDA-Public Use
  Company Number: JP-009507513-1708JPN006047

PATIENT
  Age: 64 Year
  Sex: Female
  Weight: 73 kg

DRUGS (9)
  1. PALIPERIDONE PALMITATE [Concomitant]
     Active Substance: PALIPERIDONE PALMITATE
     Indication: SCHIZOPHRENIA
     Dosage: 6 MG, QD. START DATE: UNKNOWN (BEFORE THE START OF ASENAPINE MALEATE (SYCREST))
     Route: 048
  2. RISPERIDONE. [Concomitant]
     Active Substance: RISPERIDONE
     Indication: SCHIZOPHRENIA
     Dosage: 2 MG, QD. START DATE: UNKNOWN (BEFORE THE START OF ASENAPINE MALEATE (SYCREST))
     Route: 048
     Dates: end: 20170627
  3. BIPERIDEN HYDROCHLORIDE [Concomitant]
     Active Substance: BIPERIDEN HYDROCHLORIDE
     Indication: PROPHYLAXIS
     Dosage: 1 MG, QD. START DATE: UNKNOWN
     Route: 048
  4. ASENAPINE MALEATE [Suspect]
     Active Substance: ASENAPINE MALEATE
     Indication: SCHIZOPHRENIA
     Dosage: 10 MG, QD (BEDTIME)
     Route: 060
     Dates: start: 20170627, end: 20170804
  5. ALPRAZOLAM. [Concomitant]
     Active Substance: ALPRAZOLAM
     Indication: SCHIZOPHRENIA
     Dosage: 0.4 MG, QD. START DATE: UNKNOWN (BEFORE THE START OF ASENAPINE MALEATE (SYCREST))
     Route: 048
  6. SUVOREXANT. [Suspect]
     Active Substance: SUVOREXANT
     Indication: PRODUCT USED FOR UNKNOWN INDICATION
     Dosage: 15 MG, QD
     Route: 048
     Dates: start: 20170627
  7. QUETIAPINE FUMARATE. [Concomitant]
     Active Substance: QUETIAPINE FUMARATE
     Indication: SCHIZOPHRENIA
     Dosage: 100 MG, QD
     Route: 048
     Dates: start: 20170627, end: 20170725
  8. TRIAZOLAM. [Suspect]
     Active Substance: TRIAZOLAM
     Indication: PRODUCT USED FOR UNKNOWN INDICATION
     Dosage: 0.5 MG, QD. START DATE: UNKNOWN (BEFORE THE START OF ASENAPINE MALEATE (SYCREST))
     Route: 048
  9. FLUNITRAZEPAM [Suspect]
     Active Substance: FLUNITRAZEPAM
     Indication: PRODUCT USED FOR UNKNOWN INDICATION
     Dosage: 2 MG, QD. START DATE: UNKNOWN (BEFORE THE START OF ASENAPINE MALEATE (SYCREST))
     Route: 048

REACTIONS (2)
  - Somnolence [Not Recovered/Not Resolved]
  - Death [Fatal]

NARRATIVE: CASE EVENT DATE: 20170628
